FAERS Safety Report 21374269 (Version 2)
Quarter: 2022Q3

REPORT INFORMATION
  Report Type: Spontaneous
  Country: US (occurrence: US)
  Receive Date: 20220926
  Receipt Date: 20220930
  Transmission Date: 20221026
  Serious: Yes (Other)
  Sender: FDA-Public Use
  Company Number: US-ALK-ABELLO A/S-2022AA002739

PATIENT

DRUGS (22)
  1. DERMATOPHAGOIDES PTERONYSSINUS [Suspect]
     Active Substance: DERMATOPHAGOIDES PTERONYSSINUS
     Indication: Product used for unknown indication
     Dosage: UNK
     Route: 058
     Dates: start: 20220215
  2. DERMATOPHAGOIDES PTERONYSSINUS [Suspect]
     Active Substance: DERMATOPHAGOIDES PTERONYSSINUS
     Dosage: NEW VIAL
     Route: 058
     Dates: start: 20220509
  3. QUERCUS ALBA POLLEN [Suspect]
     Active Substance: QUERCUS ALBA POLLEN
     Indication: Product used for unknown indication
     Dosage: UNK
     Route: 058
     Dates: start: 20220215
  4. QUERCUS ALBA POLLEN [Suspect]
     Active Substance: QUERCUS ALBA POLLEN
     Dosage: NEW VIAL
     Route: 058
     Dates: start: 20220509
  5. AMBROSIA ARTEMISIIFOLIA POLLEN [Suspect]
     Active Substance: AMBROSIA ARTEMISIIFOLIA POLLEN
     Indication: Product used for unknown indication
     Dosage: UNK
     Route: 058
     Dates: start: 20220215
  6. AMBROSIA ARTEMISIIFOLIA POLLEN [Suspect]
     Active Substance: AMBROSIA ARTEMISIIFOLIA POLLEN
     Dosage: NEW VIAL
     Route: 058
     Dates: start: 20220509
  7. PHLEUM PRATENSE POLLEN [Suspect]
     Active Substance: PHLEUM PRATENSE POLLEN
     Indication: Product used for unknown indication
     Dosage: UNK
     Route: 058
     Dates: start: 20220215
  8. PHLEUM PRATENSE POLLEN [Suspect]
     Active Substance: PHLEUM PRATENSE POLLEN
     Dosage: NEW VIAL
     Route: 058
     Dates: start: 20220509
  9. JUNIPERUS ASHEI POLLEN [Suspect]
     Active Substance: JUNIPERUS ASHEI POLLEN
     Indication: Product used for unknown indication
     Dosage: UNK
     Route: 058
     Dates: start: 20220215
  10. JUNIPERUS ASHEI POLLEN [Suspect]
     Active Substance: JUNIPERUS ASHEI POLLEN
     Dosage: NEW VIAL
     Route: 058
     Dates: start: 20220509
  11. FRAXINUS AMERICANA POLLEN [Suspect]
     Active Substance: FRAXINUS AMERICANA POLLEN
     Indication: Product used for unknown indication
     Dosage: UNK
     Route: 058
     Dates: start: 20220215
  12. FRAXINUS AMERICANA POLLEN [Suspect]
     Active Substance: FRAXINUS AMERICANA POLLEN
     Dosage: NEW VIAL
     Route: 058
     Dates: start: 20220509
  13. ACER NEGUNDO POLLEN [Suspect]
     Active Substance: ACER NEGUNDO POLLEN
     Indication: Product used for unknown indication
     Dosage: UNK
     Route: 058
     Dates: start: 20220215
  14. ACER NEGUNDO POLLEN [Suspect]
     Active Substance: ACER NEGUNDO POLLEN
     Dosage: NEW VIAL
     Route: 058
     Dates: start: 20220509
  15. IVA ANNUA POLLEN [Suspect]
     Active Substance: IVA ANNUA POLLEN
     Indication: Product used for unknown indication
     Dosage: UNK
     Route: 058
     Dates: start: 20220215
  16. IVA ANNUA POLLEN [Suspect]
     Active Substance: IVA ANNUA POLLEN
     Dosage: NEW VIAL
     Route: 058
     Dates: start: 20220509
  17. CYNODON DACTYLON POLLEN [Suspect]
     Active Substance: CYNODON DACTYLON POLLEN
     Indication: Product used for unknown indication
     Dosage: UNK
     Route: 058
     Dates: start: 20220215
  18. CYNODON DACTYLON POLLEN [Suspect]
     Active Substance: CYNODON DACTYLON POLLEN
     Dosage: NEW VIAL
     Route: 058
     Dates: start: 20220509
  19. SORGHUM HALEPENSE POLLEN [Suspect]
     Active Substance: SORGHUM HALEPENSE POLLEN
     Indication: Product used for unknown indication
     Dosage: UNK
     Route: 058
     Dates: start: 20220215
  20. SORGHUM HALEPENSE POLLEN [Suspect]
     Active Substance: SORGHUM HALEPENSE POLLEN
     Dosage: NEW VIAL
     Route: 058
     Dates: start: 20220509
  21. XANTHIUM STRUMARIUM POLLEN [Suspect]
     Active Substance: XANTHIUM STRUMARIUM POLLEN
     Indication: Product used for unknown indication
     Dosage: UNK
     Route: 058
     Dates: start: 20220215
  22. XANTHIUM STRUMARIUM POLLEN [Suspect]
     Active Substance: XANTHIUM STRUMARIUM POLLEN
     Dosage: NEW VIAL
     Route: 058
     Dates: start: 20220509

REACTIONS (4)
  - Swelling face [Recovered/Resolved]
  - Pruritus [Recovered/Resolved]
  - Urticaria [Recovered/Resolved]
  - Lip swelling [Recovered/Resolved]

NARRATIVE: CASE EVENT DATE: 20220628
